FAERS Safety Report 13215596 (Version 1)
Quarter: 2017Q1

REPORT INFORMATION
  Report Type: Spontaneous
  Country: ES (occurrence: ES)
  Receive Date: 20170209
  Receipt Date: 20170209
  Transmission Date: 20170428
  Serious: Yes (Other)
  Sender: FDA-Public Use
  Company Number: PHHY2017ES017713

PATIENT
  Age: 57 Year
  Sex: Female

DRUGS (6)
  1. INLYTA [Suspect]
     Active Substance: AXITINIB
     Dosage: 7 MG, Q12H
     Route: 048
     Dates: start: 20140307
  2. INLYTA [Suspect]
     Active Substance: AXITINIB
     Dosage: 10 MG, BID
     Route: 048
     Dates: start: 20140505, end: 20140901
  3. ZOMETA [Suspect]
     Active Substance: ZOLEDRONIC ACID
     Indication: PRODUCT USED FOR UNKNOWN INDICATION
     Dosage: 3.5 MG, QMO
     Route: 042
     Dates: start: 20140108, end: 20150507
  4. INLYTA [Suspect]
     Active Substance: AXITINIB
     Dosage: 5 MG, BID
     Route: 048
     Dates: start: 20140901, end: 20150727
  5. VOTRIENT [Suspect]
     Active Substance: PAZOPANIB HYDROCHLORIDE
     Indication: RENAL CELL CARCINOMA
     Dosage: 800 MG, QD
     Route: 065
     Dates: start: 20121219, end: 20131107
  6. INLYTA [Suspect]
     Active Substance: AXITINIB
     Indication: RENAL CELL CARCINOMA
     Dosage: 5 MG, BID
     Route: 048
     Dates: start: 20131205

REACTIONS (13)
  - Ejection fraction decreased [Recovered/Resolved]
  - Hypothyroidism [Unknown]
  - Osteomyelitis [Not Recovered/Not Resolved]
  - Eating disorder [Not Recovered/Not Resolved]
  - Quality of life decreased [Not Recovered/Not Resolved]
  - Hypoaesthesia [Unknown]
  - Osteonecrosis of jaw [Unknown]
  - Soft tissue mass [Unknown]
  - Pain [Unknown]
  - Abscess [Unknown]
  - Back pain [Recovered/Resolved]
  - Neoplasm progression [Recovered/Resolved]
  - Malignant neoplasm progression [Unknown]

NARRATIVE: CASE EVENT DATE: 20130910
